FAERS Safety Report 21995281 (Version 2)
Quarter: 2023Q2

REPORT INFORMATION
  Report Type: Spontaneous
  Country: PL (occurrence: PL)
  Receive Date: 20230215
  Receipt Date: 20230614
  Transmission Date: 20230722
  Serious: Yes (Hospitalization)
  Sender: FDA-Public Use
  Company Number: PL-BIOGEN-2022BI01156677

PATIENT
  Age: 29 Year
  Sex: Female

DRUGS (10)
  1. TYSABRI [Suspect]
     Active Substance: NATALIZUMAB
     Indication: Relapsing-remitting multiple sclerosis
     Route: 050
     Dates: start: 20210429, end: 20220808
  2. METHYLPREDNISOLONE [Concomitant]
     Active Substance: METHYLPREDNISOLONE
     Indication: Product used for unknown indication
     Dosage: IN THE MORNING AFTER A MEAL
     Route: 050
  3. POTASSIUM CHLORIDE [Concomitant]
     Active Substance: POTASSIUM CHLORIDE
     Indication: Product used for unknown indication
     Dosage: 2 TBL IN THE MORNING
     Route: 050
  4. Potazek Max [Concomitant]
     Indication: Product used for unknown indication
     Route: 050
  5. PANTOPRAZOLE [Concomitant]
     Active Substance: PANTOPRAZOLE
     Indication: Product used for unknown indication
     Dosage: 1 TBL IN THE EVENING
     Route: 050
  6. ESOMEPRAZOLE MAGNESIUM [Concomitant]
     Active Substance: ESOMEPRAZOLE MAGNESIUM
     Indication: Product used for unknown indication
     Route: 050
  7. Solcidiol [Concomitant]
     Indication: Product used for unknown indication
     Dosage: 4TH WEEK OF EACH MONTH
     Route: 050
  8. Calperos [Concomitant]
     Indication: Product used for unknown indication
     Route: 050
  9. ESSENTIALE FORTE [Concomitant]
     Indication: Product used for unknown indication
     Dosage: 2-3X A DAY
     Route: 050
  10. PROAXON [Concomitant]
     Indication: Product used for unknown indication
     Dosage: AFTER A MEAL
     Route: 050

REACTIONS (2)
  - Progressive multifocal leukoencephalopathy [Unknown]
  - Immune reconstitution inflammatory syndrome [Unknown]

NARRATIVE: CASE EVENT DATE: 20220915
